FAERS Safety Report 24415851 (Version 2)
Quarter: 2024Q4

REPORT INFORMATION
  Report Type: Report from Study
  Country: CA (occurrence: CA)
  Receive Date: 20241009
  Receipt Date: 20241017
  Transmission Date: 20250115
  Serious: Yes (Other)
  Sender: BOEHRINGER INGELHEIM
  Company Number: CA-BoehringerIngelheim-2023-BI-266252

PATIENT
  Sex: Female
  Weight: 56.9 kg

DRUGS (8)
  1. OFEV [Suspect]
     Active Substance: NINTEDANIB
     Indication: Interstitial lung disease
     Route: 048
     Dates: start: 20230925
  2. OFEV [Suspect]
     Active Substance: NINTEDANIB
     Route: 048
  3. RABEPRAZOLE [Concomitant]
     Active Substance: RABEPRAZOLE
  4. RIZATRIPTAN [Concomitant]
     Active Substance: RIZATRIPTAN
  5. CALCIUM [Concomitant]
     Active Substance: CALCIUM
  6. VITAMIN D NOS [Concomitant]
     Active Substance: CHOLECALCIFEROL\ERGOCALCIFEROL
  7. VENTOLIN [Concomitant]
     Active Substance: ALBUTEROL SULFATE
  8. ATROVENT [Concomitant]
     Active Substance: IPRATROPIUM BROMIDE

REACTIONS (9)
  - Intracranial aneurysm [Unknown]
  - Ruptured cerebral aneurysm [Unknown]
  - Cystitis [Recovering/Resolving]
  - Vomiting [Recovered/Resolved]
  - Weight decreased [Not Recovered/Not Resolved]
  - Asthenia [Not Recovered/Not Resolved]
  - Cough [Not Recovered/Not Resolved]
  - Decreased appetite [Recovering/Resolving]
  - Dyspnoea exertional [Unknown]
